FAERS Safety Report 24369097 (Version 1)
Quarter: 2024Q3

REPORT INFORMATION
  Report Type: Spontaneous
  Country: BR (occurrence: BR)
  Receive Date: 20240927
  Receipt Date: 20240927
  Transmission Date: 20241016
  Serious: Yes (Life-Threatening)
  Sender: NOVO NORDISK
  Company Number: BR-NOVOPROD-1289249

PATIENT
  Sex: Female

DRUGS (3)
  1. RYBELSUS [Suspect]
     Active Substance: SEMAGLUTIDE
     Dosage: 7 MG
  2. RYBELSUS [Suspect]
     Active Substance: SEMAGLUTIDE
     Indication: Product used for unknown indication
     Dosage: 3 MG
  3. RYBELSUS [Suspect]
     Active Substance: SEMAGLUTIDE
     Dosage: 14 MG

REACTIONS (6)
  - Gastrointestinal motility disorder [Unknown]
  - Pyrexia [Unknown]
  - Presyncope [Unknown]
  - Vomiting [Unknown]
  - Blood glucose decreased [Unknown]
  - Nausea [Unknown]
